FAERS Safety Report 6289835-0 (Version None)
Quarter: 2009Q3

REPORT INFORMATION
  Report Type: 
  Country: None (occurrence: None)
  Receive Date: 20090730
  Receipt Date: 20080815
  Transmission Date: 20100115
  Serious: No
  Sender: FDA-Public Use
  Company Number: US-BRISTOL-MYERS SQUIBB COMPANY-14304018

PATIENT
  Age: 70 Year
  Sex: Female
  Weight: 69 kg

DRUGS (4)
  1. COUMADIN [Suspect]
     Indication: ATRIAL FIBRILLATION
     Dosage: 1 DOSAGEFORM = 7.5 MG DAILY 4 TIMES A WEEK AND 5 MG DAILY 3 TIMES A WEEK
     Dates: start: 20080101
  2. LOPRESSOR [Concomitant]
  3. LANOXIN [Concomitant]
  4. ASPIRIN [Concomitant]

REACTIONS (1)
  - VENTRICULAR EXTRASYSTOLES [None]
